FAERS Safety Report 7347344-1 (Version None)
Quarter: 2011Q1

REPORT INFORMATION
  Report Type: 
  Country: None (occurrence: None)
  Receive Date: 20110311
  Receipt Date: 20110302
  Transmission Date: 20110831
  Serious: Yes (Hospitalization, Other)
  Sender: FDA-Public Use
  Company Number: US-ELI_LILLY_AND_COMPANY-US201103001091

PATIENT
  Age: 64 Year
  Sex: Male

DRUGS (6)
  1. INDOMETHACIN [Concomitant]
     Dosage: 75 MG, 2/D
  2. LEVOTHYROXINE [Concomitant]
     Dosage: UNK, UNKNOWN
  3. PREDNISONE TAB [Concomitant]
     Dosage: 5 MG, UNKNOWN
  4. COUMADIN [Concomitant]
     Dosage: 0.5 MG, DAILY (1/D)
  5. CYMBALTA [Suspect]
     Indication: DEPRESSION
     Dosage: 60 MG, DAILY (1/D)
     Dates: start: 20101101
  6. STOOL SOFTENER [Concomitant]
     Dosage: UNK, UNKNOWN

REACTIONS (3)
  - INFECTION [None]
  - KNEE OPERATION [None]
  - URINARY INCONTINENCE [None]
